FAERS Safety Report 8507012-7 (Version None)
Quarter: 2012Q3

REPORT INFORMATION
  Report Type: 
  Country: None (occurrence: None)
  Receive Date: 20120712
  Receipt Date: 20120702
  Transmission Date: 20120928
  Serious: Yes (Death, Life-Threatening, Hospitalization, Other)
  Sender: FDA-Public Use
  Company Number: CA-009507513-2011SP036291

PATIENT

DRUGS (1)
  1. POSACONAZOLE [Suspect]
     Indication: PROPHYLAXIS
     Dosage: 300 MG, QD
     Route: 048
     Dates: start: 20110712, end: 20110803

REACTIONS (2)
  - HEPATIC ENZYME INCREASED [None]
  - THROMBOTIC THROMBOCYTOPENIC PURPURA [None]
